FAERS Safety Report 7255512-2 (Version None)
Quarter: 2011Q1

REPORT INFORMATION
  Report Type: 
  Country: None (occurrence: None)
  Receive Date: 20110129
  Receipt Date: 20100304
  Transmission Date: 20110831
  Serious: No
  Sender: FDA-Public Use
  Company Number: US-ABBOTT-10P-163-0630970-00

PATIENT
  Sex: Female
  Weight: 61.29 kg

DRUGS (8)
  1. PREDNISONE [Concomitant]
     Indication: CROHN'S DISEASE
  2. PENTASA [Concomitant]
     Indication: CROHN'S DISEASE
     Dates: start: 20090101
  3. FIBER SUPPLEMENT [Concomitant]
     Indication: GASTROINTESTINAL DISORDER
  4. BACLOFEN [Concomitant]
     Indication: MUSCLE SPASMS
  5. BACTRIM [Concomitant]
     Indication: PROPHYLAXIS
  6. MULTI-VITAMIN [Concomitant]
     Indication: PRODUCT USED FOR UNKNOWN INDICATION
  7. HUMIRA [Suspect]
     Indication: CROHN'S DISEASE
     Dates: start: 20100101
  8. BACTRIM [Concomitant]
     Indication: BLADDER DISORDER

REACTIONS (2)
  - HYPERHIDROSIS [None]
  - HEADACHE [None]
